FAERS Safety Report 7378855-0 (Version None)
Quarter: 2011Q1

REPORT INFORMATION
  Report Type: 
  Country: None (occurrence: None)
  Receive Date: 20110328
  Receipt Date: 20110315
  Transmission Date: 20110831
  Serious: Yes (Other)
  Sender: FDA-Public Use
  Company Number: PHHO2010US17492

PATIENT
  Sex: Female
  Weight: 62.6 kg

DRUGS (6)
  1. SYNTHROID [Concomitant]
  2. ATENDOL [Concomitant]
  3. GLEEVEC [Suspect]
     Indication: CHRONIC MYELOID LEUKAEMIA
     Dosage: 400 MG, UNK
     Dates: start: 20000918, end: 20100521
  4. HYZAAR [Concomitant]
  5. NORVASC [Concomitant]
  6. XANAX [Concomitant]

REACTIONS (8)
  - AMYOTROPHIC LATERAL SCLEROSIS [None]
  - DYSARTHRIA [None]
  - ASTHENIA [None]
  - DYSPNOEA [None]
  - GAIT DISTURBANCE [None]
  - MUSCLE TWITCHING [None]
  - MUSCLE SPASMS [None]
  - DYSPHAGIA [None]
